FAERS Safety Report 5900748-3 (Version None)
Quarter: 2008Q3

REPORT INFORMATION
  Report Type: 
  Country: None (occurrence: None)
  Receive Date: 20080922
  Receipt Date: 20080915
  Transmission Date: 20090109
  Serious: Yes (Life-Threatening, Other)
  Sender: FDA-Public Use
  Company Number: THYM-1000772

PATIENT
  Age: 9 Year
  Sex: Male
  Weight: 21.7727 kg

DRUGS (5)
  1. THYMOGLOBULIN [Suspect]
     Indication: BONE MARROW CONDITIONING REGIMEN
     Dosage: 100 MG, INTRAVENOUS; 50 MG
     Route: 042
     Dates: start: 20080915, end: 20080915
  2. THYMOGLOBULIN [Suspect]
     Indication: BONE MARROW CONDITIONING REGIMEN
     Dosage: 100 MG, INTRAVENOUS; 50 MG
     Route: 042
     Dates: start: 20080916, end: 20080916
  3. STEROID (STEROID) [Concomitant]
  4. BUSULFAN (BUSULFAN) [Concomitant]
  5. SOLU-CORTEF [Concomitant]

REACTIONS (3)
  - BACTERIAL INFECTION [None]
  - CONVULSION [None]
  - SEPTIC SHOCK [None]
